FAERS Safety Report 9905612 (Version 1)
Quarter: 2013Q2

REPORT INFORMATION
  Report Type: Spontaneous
  Country: US (occurrence: None)
  Receive Date: 20130305
  Receipt Date: 20130305
  Transmission Date: 20140414
  Serious: Yes (Other)
  Sender: FDA-Public Use
  Company Number: 1000040721

PATIENT
  Age: 84 Year
  Sex: Female

DRUGS (6)
  1. DALIRESP (ROFLUMILAST) (500 MICROGRAM, TABLETS) [Suspect]
     Indication: CHRONIC OBSTRUCTIVE PULMONARY DISEASE
     Dosage: 250 MCG (250 MCG, 1 IN 1 D), ORAL)
     Route: 048
     Dates: start: 20121119, end: 20121126
  2. ADVAIR (SERETIDE) (SERETIDE) [Concomitant]
  3. PRO-AIR (PROCATEROL HYDROCHLORIDE) (PROCATEROL HYDROCHLORIDE) [Concomitant]
  4. LIPITOR (ATORVASTATOM CALCIUM) (ATORVASTATIN CALCIUM) [Concomitant]
  5. SYNTHROID (LEVOTHYROXINE SODIUM) (LEVOTHYROXINE SODIUM) [Concomitant]
  6. VASOTEC (ENALAPRIL) (ENALAPRIL) [Concomitant]

REACTIONS (4)
  - Decreased appetite [None]
  - Insomnia [None]
  - Headache [None]
  - Frequent bowel movements [None]
